FAERS Safety Report 5085757-1 (Version None)
Quarter: 2006Q3

REPORT INFORMATION
  Report Type: 
  Country: None (occurrence: None)
  Receive Date: 20060822
  Receipt Date: 20060811
  Transmission Date: 20061208
  Serious: Yes (Other)
  Sender: FDA-Public Use
  Company Number: BR-BRISTOL-MYERS SQUIBB COMPANY-13474705

PATIENT
  Age: 56 Year
  Sex: Female
  Weight: 85 kg

DRUGS (3)
  1. CAPOTEN [Suspect]
     Indication: HYPERTENSION
  2. CAPTOPRIL [Suspect]
     Indication: HYPERTENSION
  3. HYDROCHLOROTHIAZIDE [Concomitant]

REACTIONS (3)
  - BLOOD PRESSURE INADEQUATELY CONTROLLED [None]
  - CEREBROVASCULAR ACCIDENT [None]
  - LEISHMANIASIS [None]
